FAERS Safety Report 17570631 (Version 1)
Quarter: 2020Q1

REPORT INFORMATION
  Report Type: Spontaneous
  Country: DE (occurrence: DE)
  Receive Date: 20200323
  Receipt Date: 20200323
  Transmission Date: 20200409
  Serious: Yes (Death)
  Sender: FDA-Public Use
  Company Number: PHHY2018DE142963

PATIENT
  Age: 69 Year
  Sex: Female
  Weight: 48 kg

DRUGS (3)
  1. TRASTUZUMAB EMTANSINE [Suspect]
     Active Substance: ADO-TRASTUZUMAB EMTANSINE
     Indication: BREAST CANCER
     Dosage: 384 MG CYCLICAL
     Route: 042
     Dates: start: 20181011
  2. DOCETAXEL. [Suspect]
     Active Substance: DOCETAXEL
     Indication: BREAST CANCER
     Dosage: 77 MG, UNK (PER CYCLE)
     Route: 065
     Dates: start: 20181010
  3. PERTUZUMAB. [Suspect]
     Active Substance: PERTUZUMAB
     Indication: BREAST CANCER
     Dosage: 840 MG, UNK (PER CYCLE)
     Route: 042
     Dates: start: 20181011

REACTIONS (2)
  - Death [Fatal]
  - Chills [Recovered/Resolved]

NARRATIVE: CASE EVENT DATE: 20181011
